FAERS Safety Report 10496970 (Version 3)
Quarter: 2014Q4

REPORT INFORMATION
  Report Type: Spontaneous
  Country: US (occurrence: US)
  Receive Date: 20141006
  Receipt Date: 20141112
  Transmission Date: 20150528
  Serious: No
  Sender: FDA-Public Use
  Company Number: US-009507513-1409USA008780

PATIENT
  Age: 18 Year
  Sex: Female
  Weight: 62.59 kg

DRUGS (2)
  1. NEXPLANON [Suspect]
     Active Substance: ETONOGESTREL
     Indication: CONTRACEPTION
     Dosage: UNK
     Route: 059
     Dates: start: 20140910, end: 20140910
  2. NEXPLANON [Suspect]
     Active Substance: ETONOGESTREL
     Indication: DYSMENORRHOEA
     Dosage: UNK
     Route: 059
     Dates: start: 201409

REACTIONS (4)
  - Device difficult to use [Recovered/Resolved]
  - No adverse event [Unknown]
  - Drug administration error [Unknown]
  - Product quality issue [Unknown]

NARRATIVE: CASE EVENT DATE: 20140910
